FAERS Safety Report 10062521 (Version 3)
Quarter: 2014Q2

REPORT INFORMATION
  Report Type: Report from Study
  Country: US (occurrence: US)
  Receive Date: 20140407
  Receipt Date: 20140515
  Transmission Date: 20141212
  Serious: Yes (Hospitalization)
  Sender: FDA-Public Use
  Company Number: US-ACTELION-A-NJ2014-96833

PATIENT
  Age: 73 Year
  Sex: Female

DRUGS (13)
  1. VELETRI [Suspect]
     Indication: PULMONARY HYPERTENSION
     Dosage: 34 NG/KG, PER MIN
     Route: 042
     Dates: start: 20130831
  2. COUMADIN [Concomitant]
  3. DIGOXIN [Concomitant]
  4. METOLAZONE [Concomitant]
  5. TORSEMIDE [Concomitant]
  6. POTASSIUM CHLORIDE [Concomitant]
  7. METHIMAZOLE [Concomitant]
  8. PLAQUENIL [Concomitant]
  9. NEXIUM [Concomitant]
  10. METOPROLOL [Concomitant]
  11. IRON [Concomitant]
  12. MAGNESIUM [Concomitant]
  13. L-ARGININE [Concomitant]

REACTIONS (10)
  - Pneumonia [Recovering/Resolving]
  - Sepsis [Recovered/Resolved]
  - Hypotension [Recovered/Resolved]
  - White blood cell count increased [Recovered/Resolved]
  - Escherichia test positive [Recovered/Resolved]
  - Culture urine negative [Recovered/Resolved]
  - Pyrexia [Recovered/Resolved]
  - Chills [Recovered/Resolved]
  - Blood culture positive [Recovered/Resolved]
  - Escherichia bacteraemia [Recovered/Resolved]
